FAERS Safety Report 14247323 (Version 2)
Quarter: 2017Q4

REPORT INFORMATION
  Report Type: Report from Study
  Country: JP (occurrence: JP)
  Receive Date: 20171204
  Receipt Date: 20171226
  Transmission Date: 20180321
  Serious: Yes (Death, Life-Threatening, Hospitalization, Other)
  Sender: FDA-Public Use
  Company Number: JP-009507513-1711JPN003124J

PATIENT
  Age: 54 Year
  Sex: Male
  Weight: 53 kg

DRUGS (6)
  1. BENAMBAX [Concomitant]
     Active Substance: PENTAMIDINE
     Indication: PNEUMONIA
     Dosage: 210 MG, QD
     Route: 051
     Dates: start: 20160121, end: 20160126
  2. BACTRAMIN [Suspect]
     Active Substance: SULFAMETHOXAZOLE\TRIMETHOPRIM
     Indication: PNEUMONIA
     Dosage: 1 G, TID
     Route: 051
     Dates: start: 20160202, end: 20160204
  3. CASPOFUNGIN ACETATE. [Suspect]
     Active Substance: CASPOFUNGIN ACETATE
     Indication: FEBRILE NEUTROPENIA
     Dosage: 70 MG, QD
     Route: 041
     Dates: start: 20160123, end: 20160123
  4. CASPOFUNGIN ACETATE. [Suspect]
     Active Substance: CASPOFUNGIN ACETATE
     Dosage: 50 MG, QD
     Route: 041
     Dates: start: 20160124, end: 20160203
  5. MAXIPIME [Concomitant]
     Active Substance: CEFEPIME HYDROCHLORIDE
     Indication: PNEUMONIA
     Dosage: 2 G, BID
     Route: 051
     Dates: start: 20160202, end: 20160203
  6. BAKTAR [Suspect]
     Active Substance: SULFAMETHOXAZOLE\TRIMETHOPRIM
     Indication: FUNGAL INFECTION
     Dosage: 3 G, TID
     Route: 048
     Dates: start: 20160127, end: 20160203

REACTIONS (10)
  - Aspartate aminotransferase increased [Fatal]
  - Blood lactate dehydrogenase increased [Fatal]
  - Alanine aminotransferase increased [Fatal]
  - Drug ineffective [Unknown]
  - White blood cell count decreased [Fatal]
  - Gamma-glutamyltransferase increased [Fatal]
  - Neutrophil percentage decreased [Fatal]
  - Lymphoma [Fatal]
  - Blood alkaline phosphatase increased [Fatal]
  - C-reactive protein increased [Fatal]

NARRATIVE: CASE EVENT DATE: 20160202
